FAERS Safety Report 4560294-9 (Version None)
Quarter: 2005Q1

REPORT INFORMATION
  Report Type: 
  Country: None (occurrence: None)
  Receive Date: 20050119
  Receipt Date: 20050119
  Transmission Date: 20050727
  Serious: No
  Sender: FDA-Public Use
  Company Number: None

PATIENT

DRUGS (1)
  1. TRAZODONE [Suspect]
     Indication: SOMNOLENCE
     Dosage: 50 MG HS   1 - 2 DAYS

REACTIONS (1)
  - PRIAPISM [None]
